FAERS Safety Report 14183513 (Version 2)
Quarter: 2018Q1

REPORT INFORMATION
  Report Type: Spontaneous
  Country: JP (occurrence: JP)
  Receive Date: 20171113
  Receipt Date: 20180219
  Transmission Date: 20180508
  Serious: Yes (Hospitalization, Other)
  Sender: FDA-Public Use
  Company Number: JP-ELI_LILLY_AND_COMPANY-JP201711001666

PATIENT
  Age: 75 Year
  Sex: Female

DRUGS (6)
  1. CYRAMZA [Suspect]
     Active Substance: RAMUCIRUMAB
     Indication: GASTRIC CANCER
     Dosage: 400 MG, CYCLICAL
     Route: 042
     Dates: start: 20160704
  2. PACLITAXEL. [Suspect]
     Active Substance: PACLITAXEL
     Dosage: 100 MG, CYCLICAL
  3. CELECOX [Concomitant]
     Active Substance: CELECOXIB
     Indication: PRODUCT USED FOR UNKNOWN INDICATION
  4. METOTREXATE [Concomitant]
     Active Substance: METHOTREXATE SODIUM
     Indication: PRODUCT USED FOR UNKNOWN INDICATION
  5. PACLITAXEL. [Suspect]
     Active Substance: PACLITAXEL
     Indication: GASTRIC CANCER
     Dosage: 120 MG, CYCLICAL
     Route: 065
     Dates: start: 20160714
  6. PACLITAXEL. [Suspect]
     Active Substance: PACLITAXEL
     Dosage: 80 MG, CYCLICAL
     Dates: end: 20161013

REACTIONS (2)
  - Interstitial lung disease [Recovered/Resolved]
  - Thalamus haemorrhage [Recovering/Resolving]

NARRATIVE: CASE EVENT DATE: 20160927
